FAERS Safety Report 21697391 (Version 5)
Quarter: 2025Q4

REPORT INFORMATION
  Report Type: Spontaneous
  Country: PR (occurrence: PR)
  Receive Date: 20221208
  Receipt Date: 20251009
  Transmission Date: 20260118
  Serious: Yes (Hospitalization)
  Sender: JOHNSON AND JOHNSON
  Company Number: PR-JNJFOC-20221208063

PATIENT
  Age: 80 Year
  Sex: Male

DRUGS (3)
  1. ERLEADA [Suspect]
     Active Substance: APALUTAMIDE
     Indication: Prostate cancer
     Dosage: 4 TABLETS DAILY
     Route: 048
     Dates: end: 202209
  2. ERLEADA [Suspect]
     Active Substance: APALUTAMIDE
     Dosage: 2 TABLETS DAILY
     Route: 048
     Dates: end: 202209
  3. ERLEADA [Suspect]
     Active Substance: APALUTAMIDE
     Route: 048
     Dates: end: 202209

REACTIONS (7)
  - Oral infection [Recovered/Resolved]
  - Rash [Recovered/Resolved]
  - Dry skin [Recovering/Resolving]
  - Blood pressure measurement [Not Recovered/Not Resolved]
  - Palpitations [Not Recovered/Not Resolved]
  - Nausea [Recovering/Resolving]
  - Diarrhoea [Recovering/Resolving]

NARRATIVE: CASE EVENT DATE: 20220901
